FAERS Safety Report 10152640 (Version 1)
Quarter: 2014Q2

REPORT INFORMATION
  Report Type: Spontaneous
  Country: CA (occurrence: CA)
  Receive Date: 20140505
  Receipt Date: 20140505
  Transmission Date: 20141212
  Serious: Yes (Life-Threatening)
  Sender: FDA-Public Use
  Company Number: CA-B.I. PHARMACEUTICALS,INC./RIDGEFIELD-2014-BI-19789CN

PATIENT
  Age: 77 Year
  Sex: Female
  Weight: 51.7 kg

DRUGS (4)
  1. PRADAX [Suspect]
     Indication: PRODUCT USED FOR UNKNOWN INDICATION
     Dosage: 300 MG
     Route: 048
  2. CENTRUM [Concomitant]
     Route: 065
  3. METOPROLOL [Concomitant]
     Route: 065
  4. RAMIPRIL/HYDROCHLOROTHIAZIDE [Concomitant]
     Route: 065

REACTIONS (3)
  - Haemorrhage intracranial [Unknown]
  - Activated partial thromboplastin time prolonged [Unknown]
  - Brain herniation [Unknown]
